FAERS Safety Report 5025680-1 (Version None)
Quarter: 2006Q2

REPORT INFORMATION
  Report Type: 
  Country: None (occurrence: None)
  Receive Date: 20060614
  Receipt Date: 20060602
  Transmission Date: 20061013
  Serious: Yes (Hospitalization)
  Sender: FDA-Public Use
  Company Number: US-JNJFOC-20051203375

PATIENT
  Sex: Female
  Weight: 75.3 kg

DRUGS (11)
  1. ORTHO EVRA [Suspect]
     Indication: MENOMETRORRHAGIA
     Route: 062
     Dates: start: 20030819
  2. TOPROL-XL [Concomitant]
  3. TOPROL-XL [Concomitant]
     Indication: BLOOD PRESSURE
  4. VITAMIN B-12 [Concomitant]
  5. DARVOCET [Concomitant]
     Route: 048
  6. DARVOCET [Concomitant]
     Indication: PAIN
     Route: 048
  7. VITAMIN B COMPLEX CAP [Concomitant]
     Route: 060
  8. VITAMIN B COMPLEX CAP [Concomitant]
     Route: 060
  9. VITAMIN B COMPLEX CAP [Concomitant]
     Route: 060
  10. VITAMIN B COMPLEX CAP [Concomitant]
     Route: 060
  11. VITAMIN B COMPLEX CAP [Concomitant]
     Route: 060

REACTIONS (5)
  - IRON DEFICIENCY ANAEMIA [None]
  - MENORRHAGIA [None]
  - OFF LABEL USE [None]
  - PROTEIN S DECREASED [None]
  - TRANSIENT ISCHAEMIC ATTACK [None]
